FAERS Safety Report 14607163 (Version 1)
Quarter: 2018Q1

REPORT INFORMATION
  Report Type: Spontaneous
  Country: US (occurrence: US)
  Receive Date: 20180306
  Receipt Date: 20180306
  Transmission Date: 20180509
  Serious: Yes (Life-Threatening, Hospitalization, Disabling)
  Sender: FDA-Public Use
  Company Number: None

PATIENT
  Sex: Female
  Weight: 90.72 kg

DRUGS (2)
  1. SYNTHROID [Suspect]
     Active Substance: LEVOTHYROXINE SODIUM
     Indication: HYPOTHYROIDISM
     Route: 048
     Dates: start: 201801, end: 201802
  2. LEVOTHYROXINE. [Suspect]
     Active Substance: LEVOTHYROXINE

REACTIONS (10)
  - Arthralgia [None]
  - Weight increased [None]
  - Dysgeusia [None]
  - Heart rate decreased [None]
  - Product substitution issue [None]
  - Memory impairment [None]
  - Throat irritation [None]
  - Dyspnoea [None]
  - Chest pain [None]
  - Product physical issue [None]

NARRATIVE: CASE EVENT DATE: 201801
